FAERS Safety Report 19897236 (Version 1)
Quarter: 2021Q3

REPORT INFORMATION
  Report Type: Spontaneous
  Country: ES (occurrence: ES)
  Receive Date: 20210929
  Receipt Date: 20210929
  Transmission Date: 20211014
  Serious: Yes (Other)
  Sender: FDA-Public Use
  Company Number: ES-MYLANLABS-2021M1066728

PATIENT
  Age: 14 Year
  Sex: Male

DRUGS (5)
  1. DISOPYRAMIDE [Suspect]
     Active Substance: DISOPYRAMIDE
     Indication: HYPERTROPHIC CARDIOMYOPATHY
     Dosage: 10 MILLIGRAM/KILOGRAM, QD (STARTING DOSE)
     Route: 065
  2. BISOPROLOL [Suspect]
     Active Substance: BISOPROLOL
     Indication: LEFT VENTRICLE OUTFLOW TRACT OBSTRUCTION
     Dosage: 2.5 MILLIGRAM, QD (LAST CHECK?UP AT 14 YEARS OF AGE)
     Route: 065
  3. BISOPROLOL [Suspect]
     Active Substance: BISOPROLOL
     Dosage: 10 MILLIGRAM, QD (48 H AFTER START OF TREATMENT)
     Route: 065
  4. DISOPYRAMIDE [Suspect]
     Active Substance: DISOPYRAMIDE
     Indication: LEFT VENTRICLE OUTFLOW TRACT OBSTRUCTION
     Dosage: 6 MILLIGRAM/KILOGRAM, QD (LAST CHECK?UP AT 14 YEARS OF AGE)
     Route: 065
  5. DISOPYRAMIDE [Suspect]
     Active Substance: DISOPYRAMIDE
     Dosage: 15 MILLIGRAM/KILOGRAM, QD (48H AFTER THE START OF TREATMENT)
     Route: 065

REACTIONS (1)
  - Bronchospasm [Unknown]
